FAERS Safety Report 14216739 (Version 1)
Quarter: 2017Q4

REPORT INFORMATION
  Report Type: Spontaneous
  Country: US (occurrence: US)
  Receive Date: 20171122
  Receipt Date: 20171122
  Transmission Date: 20180321
  Serious: Yes (Death)
  Sender: FDA-Public Use
  Company Number: US-IPSEN BIOSCIENCE, INC.-MER-2017-000373

PATIENT

DRUGS (1)
  1. ONIVYDE [Suspect]
     Active Substance: IRINOTECAN HYDROCHLORIDE
     Indication: PANCREATIC CARCINOMA
     Dosage: 86 MG, UNK, 8 EVERY TWO WEEKS
     Route: 042

REACTIONS (1)
  - Death [Fatal]
